FAERS Safety Report 9159595 (Version 1)
Quarter: 2013Q1

REPORT INFORMATION
  Report Type: Spontaneous
  Country: US (occurrence: None)
  Receive Date: 20130312
  Receipt Date: 20130312
  Transmission Date: 20140127
  Serious: Yes (Other)
  Sender: FDA-Public Use
  Company Number: None

PATIENT
  Age: 67 Year
  Sex: Female
  Weight: 79.38 kg

DRUGS (1)
  1. LOVASTATIN [Suspect]
     Indication: BLOOD CHOLESTEROL INCREASED
     Dosage: 40MG ONE PER DAY PO
     Route: 048
     Dates: start: 20111201, end: 20130217

REACTIONS (6)
  - Asthenia [None]
  - Arthralgia [None]
  - Myalgia [None]
  - Fall [None]
  - Pain in extremity [None]
  - Pain [None]
